FAERS Safety Report 7209897 (Version 2)
Quarter: 2012Q4

REPORT INFORMATION
  Report Type: 
  Country: CA (occurrence: CA)
  Receive Date: 20091210
  Receipt Date: 20121106
  Transmission Date: 20130627
  Serious: Yes (Death, Hospitalization)
  Sender: FDA-Public Use
  Company Number: PHHY2009CA22791

PATIENT
  Sex: Female

DRUGS (1)
  1. SANDOSTATIN LAR [Suspect]
     Indication: CARCINOID TUMOUR
     Dosage: 30 mg every 4 weeks
     Route: 030
     Dates: start: 20080122

REACTIONS (5)
  - Death [Fatal]
  - Pain [Recovered/Resolved]
  - Memory impairment [Unknown]
  - Blood pressure increased [Unknown]
  - Heart rate increased [Unknown]
